FAERS Safety Report 19973755 (Version 1)
Quarter: 2021Q4

REPORT INFORMATION
  Report Type: Spontaneous
  Country: KR (occurrence: KR)
  Receive Date: 20211020
  Receipt Date: 20211020
  Transmission Date: 20220303
  Serious: Yes (Hospitalization)
  Sender: FDA-Public Use
  Company Number: KR-ALVOGEN-2021-ALVOGEN-117665

PATIENT
  Age: 47 Year
  Sex: Female

DRUGS (1)
  1. LIDOCAINE [Suspect]
     Active Substance: LIDOCAINE
     Indication: Periarthritis
     Dosage: 3ML OF 2% LIDOCAINE

REACTIONS (2)
  - Nerve root injury [Recovering/Resolving]
  - Toxicity to various agents [Recovering/Resolving]
